FAERS Safety Report 5424077-X (Version None)
Quarter: 2007Q3

REPORT INFORMATION
  Report Type: 
  Country: None (occurrence: None)
  Receive Date: 20070823
  Receipt Date: 20070815
  Transmission Date: 20080115
  Serious: Yes (Death)
  Sender: FDA-Public Use
  Company Number: JP-SHR-JP-2007-031332

PATIENT
  Age: 60 Year
  Sex: Female

DRUGS (7)
  1. SOTALOL HCL [Suspect]
     Indication: VENTRICULAR TACHYCARDIA
     Dosage: 40 MG, UNK
     Route: 048
     Dates: start: 20050628, end: 20060706
  2. SOTALOL HCL [Suspect]
     Dosage: 20 MG, UNK
     Route: 048
     Dates: start: 20060707, end: 20060714
  3. SOTALOL HCL [Suspect]
     Dosage: 40 MG, UNK
     Route: 048
     Dates: start: 20060715, end: 20070207
  4. LASIX [Concomitant]
     Dosage: UNK, UNK
     Route: 048
     Dates: start: 20050628, end: 20070207
  5. ALDACTONE [Concomitant]
     Dosage: UNK, UNK
     Route: 048
     Dates: start: 20050628, end: 20070207
  6. ARTIST [Concomitant]
     Dosage: UNK, UNK
     Route: 048
     Dates: start: 20050628, end: 20060707
  7. DEPAKENE [Concomitant]
     Dosage: UNK, UNK
     Route: 048
     Dates: start: 20050628, end: 20070207

REACTIONS (1)
  - DEATH [None]
